FAERS Safety Report 15277018 (Version 3)
Quarter: 2018Q3

REPORT INFORMATION
  Report Type: Report from Study
  Country: CN (occurrence: CN)
  Receive Date: 20180814
  Receipt Date: 20180928
  Transmission Date: 20181010
  Serious: Yes (Hospitalization)
  Sender: FDA-Public Use
  Company Number: CN-BRISTOL-MYERS SQUIBB COMPANY-BMS-2018-072810

PATIENT
  Age: 55 Year
  Sex: Male

DRUGS (5)
  1. BIFIDOBACTERIUM BIFIDUM [Concomitant]
     Active Substance: BIFIDOBACTERIUM BIFIDUM
     Indication: PRODUCT USED FOR UNKNOWN INDICATION
     Route: 065
  2. NIVOLUMAB [Suspect]
     Active Substance: NIVOLUMAB
     Indication: NON-SMALL CELL LUNG CANCER
     Dosage: 240 MG, Q2WK
     Route: 042
     Dates: start: 20180622, end: 20180719
  3. OXYCODONE AND ACETAMINOPHEN [Concomitant]
     Active Substance: ACETAMINOPHEN\OXYCODONE HYDROCHLORIDE
     Indication: PRODUCT USED FOR UNKNOWN INDICATION
     Route: 065
  4. CELEBREX [Concomitant]
     Active Substance: CELECOXIB
     Indication: PRODUCT USED FOR UNKNOWN INDICATION
     Route: 065
  5. BACILLUS LICHENFORMIS [Concomitant]
     Indication: PRODUCT USED FOR UNKNOWN INDICATION
     Route: 065

REACTIONS (1)
  - Arthralgia [Recovered/Resolved]

NARRATIVE: CASE EVENT DATE: 20180803
